FAERS Safety Report 25548430 (Version 1)
Quarter: 2025Q3

REPORT INFORMATION
  Report Type: Spontaneous
  Country: GB (occurrence: GB)
  Receive Date: 20250714
  Receipt Date: 20250714
  Transmission Date: 20251020
  Serious: Yes (Other)
  Sender: TEVA
  Company Number: GB-MHRA-36047216

PATIENT
  Age: 71 Year
  Sex: Female

DRUGS (3)
  1. PROMETHAZINE [Suspect]
     Active Substance: PROMETHAZINE HYDROCHLORIDE
     Indication: Product used for unknown indication
     Dosage: DAILY DOSAGE: 10MG
     Route: 065
     Dates: start: 2021
  2. VENLAFAXINE [Suspect]
     Active Substance: VENLAFAXINE HYDROCHLORIDE
     Indication: Product used for unknown indication
     Dosage: MOSTLY OVER 300 MG PER DAY
     Route: 065
     Dates: start: 2000
  3. QUETIAPINE [Suspect]
     Active Substance: QUETIAPINE
     Indication: Product used for unknown indication
     Dosage: DAILY DOSAGE: 25MG
     Route: 065
     Dates: start: 2021

REACTIONS (1)
  - Tardive dyskinesia [Unknown]
